FAERS Safety Report 12085225 (Version 4)
Quarter: 2016Q2

REPORT INFORMATION
  Report Type: Report from Study
  Country: US (occurrence: US)
  Receive Date: 20160217
  Receipt Date: 20160420
  Transmission Date: 20160815
  Serious: Yes (Other)
  Sender: FDA-Public Use
  Company Number: US-SA-2016SA030930

PATIENT
  Age: 55 Year
  Sex: Female

DRUGS (1)
  1. LEMTRADA [Suspect]
     Active Substance: ALEMTUZUMAB
     Indication: MULTIPLE SCLEROSIS
     Route: 041
     Dates: start: 20160201, end: 20160205

REACTIONS (15)
  - Urticaria [Recovered/Resolved]
  - Nasopharyngitis [Recovering/Resolving]
  - Upper respiratory tract infection [Unknown]
  - Urinary tract infection [Unknown]
  - Blood urine present [Unknown]
  - Bronchitis [Recovering/Resolving]
  - Pharyngeal oedema [Recovered/Resolved]
  - Balance disorder [Not Recovered/Not Resolved]
  - Vision blurred [Unknown]
  - Asthenia [Recovering/Resolving]
  - Dizziness [Not Recovered/Not Resolved]
  - Pyrexia [Unknown]
  - Infusion related reaction [Recovered/Resolved]
  - Angioedema [Recovered/Resolved]
  - Multiple sclerosis relapse [Not Recovered/Not Resolved]

NARRATIVE: CASE EVENT DATE: 20160204
